FAERS Safety Report 8432802-9 (Version None)
Quarter: 2012Q2

REPORT INFORMATION
  Report Type: 
  Country: None (occurrence: None)
  Receive Date: 20120613
  Receipt Date: 20120609
  Transmission Date: 20120825
  Serious: Yes (Other)
  Sender: FDA-Public Use
  Company Number: DE-B.I. PHARMACEUTICALS,INC./RIDGEFIELD-2012-DE-01447DE

PATIENT
  Sex: Female
  Weight: 50 kg

DRUGS (3)
  1. METOCLOPRAMIDE HYDROCHLORIDE [Suspect]
     Dosage: 2-3 DOSE UNITS
     Route: 048
     Dates: start: 20120609, end: 20120609
  2. AGGRENOX [Suspect]
     Dosage: 37 ANZ
     Route: 048
     Dates: start: 20120609, end: 20120609
  3. IBUPROFEN [Suspect]
     Dosage: 50 ANZ
     Route: 048
     Dates: start: 20120609, end: 20120609

REACTIONS (3)
  - SUICIDE ATTEMPT [None]
  - TACHYCARDIA [None]
  - VOMITING [None]
